FAERS Safety Report 6687558-7 (Version None)
Quarter: 2010Q2

REPORT INFORMATION
  Report Type: 
  Country: None (occurrence: None)
  Receive Date: 20100419
  Receipt Date: 20100415
  Transmission Date: 20101027
  Serious: Yes (Hospitalization)
  Sender: FDA-Public Use
  Company Number: FR-MERCK-1004FRA00060

PATIENT
  Age: 70 Year
  Sex: Male

DRUGS (8)
  1. VYTORIN [Suspect]
     Route: 048
  2. CISPLATIN [Suspect]
     Indication: LUNG NEOPLASM MALIGNANT
     Route: 042
     Dates: start: 20080709, end: 20080910
  3. TAXOTERE [Suspect]
     Indication: LUNG NEOPLASM MALIGNANT
     Route: 042
     Dates: start: 20080709, end: 20080910
  4. COVERSYL (PERINDOPRIL ARGININE) [Suspect]
     Route: 048
  5. VASTAREL [Suspect]
     Route: 048
  6. KARDEGIC [Suspect]
     Route: 048
  7. SPIRIVA [Suspect]
     Route: 055
  8. AIROMIR [Suspect]
     Route: 055

REACTIONS (2)
  - GYNAECOMASTIA [None]
  - PRIMARY HYPOGONADISM [None]
